FAERS Safety Report 23820172 (Version 1)
Quarter: 2024Q2

REPORT INFORMATION
  Report Type: Spontaneous
  Country: US (occurrence: US)
  Receive Date: 20240506
  Receipt Date: 20240506
  Transmission Date: 20240716
  Serious: Yes (Other)
  Sender: FDA-Public Use
  Company Number: US-AUROBINDO-AUR-APL-2024-020621

PATIENT
  Sex: Male

DRUGS (25)
  1. ACETAMINOPHEN [Suspect]
     Active Substance: ACETAMINOPHEN
     Indication: Abdominal pain
  2. ACETAMINOPHEN [Suspect]
     Active Substance: ACETAMINOPHEN
     Indication: Small intestinal obstruction
  3. DULOXETINE [Suspect]
     Active Substance: DULOXETINE
     Indication: Abdominal pain
     Dosage: UNK
     Route: 065
  4. DULOXETINE [Suspect]
     Active Substance: DULOXETINE
     Indication: Small intestinal obstruction
  5. HYDROMORPHONE [Suspect]
     Active Substance: HYDROMORPHONE
     Indication: Abdominal pain
     Dosage: UNK, RECEIVED PUMP OF HYDROMORPHONE 0-0.2 MG/HOUR BASAL RATE WITH AS NEEDED 0.3MG EVERY 10MIN
     Route: 065
  6. HYDROMORPHONE [Suspect]
     Active Substance: HYDROMORPHONE
     Indication: Small intestinal obstruction
  7. LACTULOSE [Suspect]
     Active Substance: LACTULOSE
     Indication: Abdominal pain
     Dosage: UNK
     Route: 065
  8. LACTULOSE [Suspect]
     Active Substance: LACTULOSE
     Indication: Small intestinal obstruction
  9. ROPIVACAINE HYDROCHLORIDE [Suspect]
     Active Substance: ROPIVACAINE HYDROCHLORIDE
     Indication: Abdominal pain
     Dosage: UNK, AT A BASAL RATE OF 6 ML/HOUR WITH A BOLUS OF 4ML AVAILABLE EVERY HOUR
     Route: 008
  10. BUPRENORPHINE [Suspect]
     Active Substance: BUPRENORPHINE
     Indication: Abdominal pain
     Dosage: UNK
     Route: 060
  11. BUPRENORPHINE [Suspect]
     Active Substance: BUPRENORPHINE
     Indication: Small intestinal obstruction
  12. DRONABINOL [Suspect]
     Active Substance: DRONABINOL
     Indication: Abdominal pain
  13. DRONABINOL [Suspect]
     Active Substance: DRONABINOL
     Indication: Small intestinal obstruction
  14. ENEMA (SODIUM PHOSPHATE, DIBASIC\SODIUM PHOSPHATE, MONOBASIC) [Suspect]
     Active Substance: SODIUM PHOSPHATE, DIBASIC\SODIUM PHOSPHATE, MONOBASIC
     Indication: Small intestinal obstruction
  15. FENTANYL [Suspect]
     Active Substance: FENTANYL\FENTANYL CITRATE
     Indication: Abdominal pain
     Dosage: UNK, INITIALLY 25 ?G/HOUR, TITRATED UP TO 125 ?G/HOUR
     Route: 065
  16. METOCLOPRAMIDE [Suspect]
     Active Substance: METOCLOPRAMIDE
     Indication: Abdominal pain
  17. METOCLOPRAMIDE [Suspect]
     Active Substance: METOCLOPRAMIDE
     Indication: Small intestinal obstruction
  18. POLYETHYLENE GLYCOL [Suspect]
     Active Substance: POLYETHYLENE GLYCOL
     Indication: Abdominal pain
  19. POLYETHYLENE GLYCOL [Suspect]
     Active Substance: POLYETHYLENE GLYCOL
     Indication: Small intestinal obstruction
  20. SENNA [Suspect]
     Active Substance: SENNA LEAF\SENNOSIDES\SENNOSIDES A AND B
     Indication: Abdominal pain
  21. SENNA [Suspect]
     Active Substance: SENNA LEAF\SENNOSIDES\SENNOSIDES A AND B
     Indication: Small intestinal obstruction
  22. DECADRON [Concomitant]
     Active Substance: DEXAMETHASONE
     Indication: Product used for unknown indication
     Dosage: UNK
     Route: 065
  23. OCTREOTIDE [Concomitant]
     Active Substance: OCTREOTIDE\OCTREOTIDE ACETATE
     Indication: Product used for unknown indication
     Dosage: UNK
     Route: 065
  24. OXYCODONE [Concomitant]
     Active Substance: OXYCODONE\OXYCODONE HYDROCHLORIDE
     Indication: Abdominal pain
     Dosage: UNK
     Route: 065
  25. METHADONE [Concomitant]
     Active Substance: METHADONE HYDROCHLORIDE
     Indication: Abdominal pain
     Dosage: UNK
     Route: 065

REACTIONS (3)
  - Ileus [Unknown]
  - Sepsis [Unknown]
  - Drug ineffective [Unknown]
